FAERS Safety Report 22302398 (Version 1)
Quarter: 2023Q2

REPORT INFORMATION
  Report Type: Report from Study
  Country: US (occurrence: US)
  Receive Date: 20230510
  Receipt Date: 20230510
  Transmission Date: 20230721
  Serious: No
  Sender: FDA-Public Use
  Company Number: US-002147023-NVSC2023US103291

PATIENT
  Sex: Male

DRUGS (1)
  1. COSENTYX [Suspect]
     Active Substance: SECUKINUMAB
     Indication: Psoriasis
     Dosage: UNK UNK, QMO
     Route: 058

REACTIONS (5)
  - Limb discomfort [Not Recovered/Not Resolved]
  - Arthritis [Unknown]
  - Condition aggravated [Unknown]
  - Cough [Unknown]
  - Therapy non-responder [Unknown]
